FAERS Safety Report 16781248 (Version 1)
Quarter: 2019Q3

REPORT INFORMATION
  Report Type: Spontaneous
  Country: CA (occurrence: CA)
  Receive Date: 20190906
  Receipt Date: 20190906
  Transmission Date: 20191005
  Serious: Yes (Other)
  Sender: FDA-Public Use
  Company Number: PHHY2019CA205581

PATIENT

DRUGS (1)
  1. PAZOPANIB [Suspect]
     Active Substance: PAZOPANIB
     Indication: HORMONE-REFRACTORY PROSTATE CANCER
     Dosage: 800 MG, QD
     Route: 065

REACTIONS (2)
  - Decreased appetite [Unknown]
  - Product use in unapproved indication [Unknown]
